FAERS Safety Report 19236832 (Version 1)
Quarter: 2021Q2

REPORT INFORMATION
  Report Type: Spontaneous
  Country: US (occurrence: US)
  Receive Date: 20210507
  Receipt Date: 20210507
  Transmission Date: 20210717
  Serious: No
  Sender: FDA-Public Use
  Company Number: None

PATIENT
  Age: 72 Year
  Sex: Female

DRUGS (1)
  1. ORENCIA [Suspect]
     Active Substance: ABATACEPT
     Route: 041
     Dates: start: 20210507

REACTIONS (3)
  - Interstitial lung disease [None]
  - Lung cyst [None]
  - Pulmonary mass [None]

NARRATIVE: CASE EVENT DATE: 20210507
